FAERS Safety Report 18360336 (Version 1)
Quarter: 2020Q4

REPORT INFORMATION
  Report Type: Spontaneous
  Country: US (occurrence: US)
  Receive Date: 20201008
  Receipt Date: 20201008
  Transmission Date: 20210114
  Serious: Yes (Hospitalization)
  Sender: FDA-Public Use
  Company Number: None

PATIENT
  Age: 56 Year
  Sex: Female

DRUGS (12)
  1. FLUTICASONE. [Concomitant]
     Active Substance: FLUTICASONE
  2. GLIPIZIDE. [Concomitant]
     Active Substance: GLIPIZIDE
  3. ENVARSUS XR [Suspect]
     Active Substance: TACROLIMUS
  4. HYDROCO/APAP [Concomitant]
     Active Substance: ACETAMINOPHEN\HYDROCODONE
  5. PREDNISONE. [Concomitant]
     Active Substance: PREDNISONE
  6. LANTUS SOLOS [Concomitant]
  7. NIFEDIPINE. [Concomitant]
     Active Substance: NIFEDIPINE
  8. ENVARSUS XR [Suspect]
     Active Substance: TACROLIMUS
  9. VICTOZA [Concomitant]
     Active Substance: LIRAGLUTIDE
  10. CLARITHROMYC [Concomitant]
  11. CYCLOBENZAPR [Concomitant]
     Active Substance: CYCLOBENZAPRINE
  12. RIZATRIPTAN. [Concomitant]
     Active Substance: RIZATRIPTAN

REACTIONS (2)
  - Muscle spasms [None]
  - Fistula [None]

NARRATIVE: CASE EVENT DATE: 20200926
